FAERS Safety Report 8420352-5 (Version None)
Quarter: 2012Q2

REPORT INFORMATION
  Report Type: 
  Country: None (occurrence: None)
  Receive Date: 20120607
  Receipt Date: 20120528
  Transmission Date: 20120825
  Serious: Yes (Hospitalization)
  Sender: FDA-Public Use
  Company Number: CA-ABBOTT-12P-028-0939884-00

PATIENT
  Sex: Male

DRUGS (2)
  1. PENTASA [Concomitant]
     Indication: CROHN'S DISEASE
     Route: 048
     Dates: start: 20030204
  2. HUMIRA [Suspect]
     Indication: CROHN'S DISEASE
     Route: 058
     Dates: start: 20081001

REACTIONS (2)
  - SMALL INTESTINAL OBSTRUCTION [None]
  - INTESTINAL ANASTOMOSIS COMPLICATION [None]
